FAERS Safety Report 8618329-X (Version None)
Quarter: 2012Q3

REPORT INFORMATION
  Report Type: 
  Country: None (occurrence: None)
  Receive Date: 20120824
  Receipt Date: 20120815
  Transmission Date: 20120928
  Serious: No
  Sender: FDA-Public Use
  Company Number: US-BIOGENIDEC-2012BI031859

PATIENT
  Age: 66 Year
  Sex: Female

DRUGS (3)
  1. BENADRYL [Concomitant]
     Indication: PREMEDICATION
  2. TYLENOL [Concomitant]
     Indication: PREMEDICATION
  3. TYSABRI [Suspect]
     Indication: MULTIPLE SCLEROSIS
     Route: 042
     Dates: start: 20111109, end: 20120815

REACTIONS (4)
  - VOMITING [None]
  - FLUSHING [None]
  - NAUSEA [None]
  - CHEST DISCOMFORT [None]
